FAERS Safety Report 5511302-X (Version None)
Quarter: 2007Q4

REPORT INFORMATION
  Report Type: 
  Country: None (occurrence: None)
  Receive Date: 20071109
  Receipt Date: 20070802
  Transmission Date: 20080405
  Serious: No
  Sender: FDA-Public Use
  Company Number: A0668710A

PATIENT
  Sex: Female

DRUGS (1)
  1. ALTABAX [Suspect]
     Indication: ABSCESS
     Route: 065

REACTIONS (2)
  - SKIN DISCOLOURATION [None]
  - SKIN EXFOLIATION [None]
